FAERS Safety Report 6200286-7 (Version None)
Quarter: 2009Q2

REPORT INFORMATION
  Report Type: 
  Country: None (occurrence: None)
  Receive Date: 20090522
  Receipt Date: 20090330
  Transmission Date: 20091009
  Serious: Yes (Death, Other)
  Sender: FDA-Public Use
  Company Number: US-BAYER-200915559NA

PATIENT
  Age: 51 Year
  Sex: Male
  Weight: 77 kg

DRUGS (49)
  1. MAGNEVIST [Suspect]
     Indication: NUCLEAR MAGNETIC RESONANCE IMAGING
     Dosage: TOTAL DAILY DOSE: 17 ML
     Route: 042
     Dates: start: 20041230, end: 20041230
  2. MAGNEVIST [Suspect]
     Dosage: TOTAL DAILY DOSE: 17 ML
     Route: 042
     Dates: start: 20041231, end: 20041231
  3. MAGNEVIST [Suspect]
     Dosage: TOTAL DAILY DOSE: 17 ML
     Route: 042
     Dates: start: 20050207, end: 20050207
  4. MAGNEVIST [Suspect]
     Dosage: TOTAL DAILY DOSE: 16 ML
     Route: 042
     Dates: start: 20050310, end: 20050310
  5. MAGNEVIST [Suspect]
     Dosage: TOTAL DAILY DOSE: 18 ML
     Route: 042
     Dates: start: 20050627, end: 20050627
  6. MAGNEVIST [Suspect]
     Dosage: TOTAL DAILY DOSE: 18 ML
     Route: 042
     Dates: start: 20050928, end: 20050928
  7. MAGNEVIST [Suspect]
     Dosage: TOTAL DAILY DOSE: 18 ML
     Route: 042
     Dates: start: 20051116, end: 20051116
  8. MAGNEVIST [Suspect]
     Dosage: TOTAL DAILY DOSE: 18 ML
     Route: 042
     Dates: start: 20060209, end: 20060209
  9. MAGNEVIST [Suspect]
     Dosage: TOTAL DAILY DOSE: 17 ML
     Route: 042
     Dates: start: 20060505, end: 20060505
  10. MAGNEVIST [Suspect]
     Route: 042
     Dates: start: 20070618, end: 20070618
  11. MAGNEVIST [Suspect]
     Dosage: TOTAL DAILY DOSE: 19 ML
     Route: 042
     Dates: start: 20070509, end: 20070509
  12. MAGNEVIST [Suspect]
     Dosage: TOTAL DAILY DOSE: 18 ML
     Route: 042
     Dates: start: 20070508, end: 20070508
  13. MAGNEVIST [Suspect]
     Dosage: TOTAL DAILY DOSE: 18 ML
     Route: 042
     Dates: start: 20070321, end: 20070321
  14. MAGNEVIST [Suspect]
     Dosage: TOTAL DAILY DOSE: 18 ML
     Route: 042
     Dates: start: 20070320, end: 20070320
  15. MAGNEVIST [Suspect]
     Dosage: TOTAL DAILY DOSE: 18 ML
     Route: 042
     Dates: start: 20061115, end: 20061115
  16. MAGNEVIST [Suspect]
     Dosage: TOTAL DAILY DOSE: 18 ML
     Route: 042
     Dates: start: 20061114, end: 20061114
  17. MAGNEVIST [Suspect]
     Dosage: TOTAL DAILY DOSE: 18 ML
     Route: 042
     Dates: start: 20060808, end: 20060808
  18. MAGNEVIST [Suspect]
     Dosage: REPORTED AS ^MAG^
     Dates: start: 20050624, end: 20050624
  19. MAGNEVIST [Suspect]
     Dosage: TOTAL DAILY DOSE: 17 ML
     Route: 042
     Dates: start: 20060504, end: 20060504
  20. MAGNEVIST [Suspect]
     Dosage: TOTAL DAILY DOSE: 17 ML
     Route: 042
     Dates: start: 20080220, end: 20080220
  21. MAGNEVIST [Suspect]
     Dosage: TOTAL DAILY DOSE: 17 ML
     Route: 042
     Dates: start: 20080219, end: 20080219
  22. MAGNEVIST [Suspect]
     Dosage: TOTAL DAILY DOSE: 9 ML
     Route: 042
     Dates: start: 20071114, end: 20071114
  23. MAGNEVIST [Suspect]
     Dosage: TOTAL DAILY DOSE: 20 ML
     Route: 042
     Dates: start: 20070904, end: 20070904
  24. MAGNEVIST [Suspect]
     Dosage: TOTAL DAILY DOSE: 19 ML
     Route: 042
     Dates: start: 20070801, end: 20070801
  25. MAGNEVIST [Suspect]
     Dosage: TOTAL DAILY DOSE: 19 ML
     Route: 042
     Dates: start: 20070731, end: 20070731
  26. MAGNEVIST [Suspect]
     Dates: start: 20080423, end: 20080423
  27. MAGNEVIST [Suspect]
     Dates: start: 20080418, end: 20080418
  28. MAGNEVIST [Suspect]
     Dates: start: 20070615, end: 20070615
  29. MAGNEVIST [Suspect]
     Dosage: TOTAL DAILY DOSE: 17 ML
     Route: 042
     Dates: start: 20060208, end: 20060208
  30. MAGNEVIST [Suspect]
     Dosage: TOTAL DAILY DOSE: 18 ML
     Route: 042
     Dates: start: 20051115, end: 20051115
  31. MAGNEVIST [Suspect]
     Dosage: TOTAL DAILY DOSE: 17 ML
     Route: 042
     Dates: start: 20050823, end: 20050823
  32. MAGNEVIST [Suspect]
     Dosage: TOTAL DAILY DOSE: 17 ML
     Route: 042
     Dates: start: 20050311, end: 20050311
  33. MAGNEVIST [Suspect]
     Dosage: TOTAL DAILY DOSE: 16 ML
     Route: 042
     Dates: start: 20050404, end: 20050404
  34. OMNISCAN [Suspect]
     Indication: NUCLEAR MAGNETIC RESONANCE IMAGING
     Dosage: TOTAL DAILY DOSE: 18 ML
     Dates: start: 20041220, end: 20041220
  35. OMNISCAN [Suspect]
     Dosage: TOTAL DAILY DOSE: 11 ML
     Dates: start: 20060809, end: 20060809
  36. MULTIHANCE [Suspect]
     Indication: DRUG USE FOR UNKNOWN INDICATION
     Dosage: TOTAL DAILY DOSE: 19 ML
     Dates: start: 20070731, end: 20070731
  37. PAIN MEDICATION [Concomitant]
     Indication: PAIN
  38. INTERFERON [Concomitant]
     Indication: NEOPLASM
     Dates: start: 20050101, end: 20060101
  39. NEXAVAR [Concomitant]
     Indication: NEOPLASM MALIGNANT
     Dates: start: 20060101, end: 20070101
  40. TORISEL [Concomitant]
     Indication: NEOPLASM
     Dates: end: 20070101
  41. KEPPRA [Concomitant]
     Indication: CONVULSION PROPHYLAXIS
     Route: 048
  42. GEMCITABINE [Concomitant]
  43. CAPECITABINE [Concomitant]
  44. MIRALAX [Concomitant]
     Indication: CONSTIPATION
  45. SUNITINIB [Concomitant]
     Indication: NEOPLASM MALIGNANT
  46. PLAVIX [Concomitant]
  47. ASPIRIN [Concomitant]
  48. AMBIEN [Concomitant]
  49. ATIVAN [Concomitant]
     Indication: ANXIETY

REACTIONS (12)
  - ANXIETY [None]
  - ARTHROPATHY [None]
  - CARDIAC DISORDER [None]
  - DYSPNOEA [None]
  - MOBILITY DECREASED [None]
  - NEPHROGENIC SYSTEMIC FIBROSIS [None]
  - OEDEMA PERIPHERAL [None]
  - PAIN [None]
  - RENAL CELL CARCINOMA [None]
  - RESPIRATORY DISORDER [None]
  - SKIN DISORDER [None]
  - SKIN FIBROSIS [None]
